FAERS Safety Report 6155846-9 (Version None)
Quarter: 2009Q2

REPORT INFORMATION
  Report Type: 
  Country: None (occurrence: None)
  Receive Date: 20090413
  Receipt Date: 20090413
  Transmission Date: 20091009
  Serious: Yes (Hospitalization)
  Sender: FDA-Public Use
  Company Number: None

PATIENT
  Sex: Male
  Weight: 104 kg

DRUGS (9)
  1. DECITABINE [Suspect]
     Indication: MYELODYSPLASTIC SYNDROME
     Dosage: 20MG/M2 QW IV CYCLE 3
     Route: 042
     Dates: start: 20081006, end: 20081010
  2. ARSENIC TRIOXIDE [Suspect]
     Dosage: 10.4MG QW IV
     Route: 042
     Dates: start: 20081006
  3. ARSENIC TRIOXIDE [Suspect]
     Dosage: 10.4MG QW IV
     Route: 042
     Dates: start: 20081013
  4. ARSENIC TRIOXIDE [Suspect]
     Dosage: 10.4MG QW IV
     Route: 042
     Dates: start: 20081020
  5. ARSENIC TRIOXIDE [Suspect]
     Dosage: 10.4MG QW IV
     Route: 042
     Dates: start: 20081027
  6. ASCORBIC ACID [Suspect]
     Dosage: 1000 MG QW IV
     Route: 042
     Dates: start: 20081006
  7. ASCORBIC ACID [Suspect]
     Dosage: 1000 MG QW IV
     Route: 042
     Dates: start: 20081013
  8. ASCORBIC ACID [Suspect]
     Dosage: 1000 MG QW IV
     Route: 042
     Dates: start: 20081020
  9. ASCORBIC ACID [Suspect]
     Dosage: 1000 MG QW IV
     Route: 042
     Dates: start: 20081027

REACTIONS (3)
  - DECREASED APPETITE [None]
  - FATIGUE [None]
  - PYREXIA [None]
